FAERS Safety Report 21225338 (Version 9)
Quarter: 2022Q4

REPORT INFORMATION
  Report Type: Report from Study
  Country: IT (occurrence: IT)
  Receive Date: 20220817
  Receipt Date: 20221208
  Transmission Date: 20230113
  Serious: Yes (Hospitalization)
  Sender: FDA-Public Use
  Company Number: IT-AMGEN-ITACT2022139863

PATIENT
  Age: 6 Year
  Sex: Male

DRUGS (25)
  1. CARFILZOMIB [Suspect]
     Active Substance: CARFILZOMIB
     Indication: Acute lymphocytic leukaemia
     Dosage: 51 MILLIGRAM
     Route: 040
     Dates: start: 20220812
  2. DEXAMETHASONE [Concomitant]
     Active Substance: DEXAMETHASONE
     Dosage: 1-4 UNK,0.96-12 MILLIGRAM, 50-85 UNK, AND 1600 UNK
     Dates: start: 20220622
  3. VINCRISTINE [Concomitant]
     Active Substance: VINCRISTINE
     Dosage: 2-51 MILLIGRAM
     Route: 040
     Dates: start: 20220805, end: 20220814
  4. METHOTREXATE [Concomitant]
     Active Substance: METHOTREXATE
     Dosage: 51-80 MILLIGRAM
     Route: 040
     Dates: start: 20220707, end: 20220807
  5. PEG/L-ASPARAGINASE [Concomitant]
     Active Substance: PEGASPARGASE
     Dosage: 680-1600 INTERNATIONAL UNIT
     Dates: start: 20180612, end: 20180612
  6. ALLOPURINOL [Concomitant]
     Active Substance: ALLOPURINOL
     Dosage: 500 MILLILITER
     Route: 042
     Dates: start: 20220707, end: 20220714
  7. ALBUMIN HUMAN [Concomitant]
     Active Substance: ALBUMIN HUMAN
     Dosage: 2 MILLIGRAM, 500 UNK
     Route: 042
     Dates: start: 20220713, end: 20220807
  8. AT III [Concomitant]
     Dosage: 0.4 MILLIGRAM
     Route: 045
     Dates: start: 20220704, end: 20220714
  9. HYDROGEN PEROXIDE [Concomitant]
     Active Substance: HYDROGEN PEROXIDE
     Dosage: 5 MILLILITER
     Route: 048
     Dates: start: 20220709, end: 20220901
  10. OMEPRAZOLE [Concomitant]
     Active Substance: OMEPRAZOLE
     Dosage: UNK
     Dates: start: 20220708, end: 20220816
  11. AMILORIDE HYDROCHLORIDE\HYDROCHLOROTHIAZIDE [Concomitant]
     Active Substance: AMILORIDE HYDROCHLORIDE\HYDROCHLOROTHIAZIDE
     Dosage: 1000 MILLIGRAM
     Route: 040
     Dates: start: 20220701, end: 20220707
  12. ONDANSETRON [Concomitant]
     Active Substance: ONDANSETRON
     Dosage: 1-2.5 MILLIGRAM, AND  500-1000 UNK
     Dates: start: 20220713, end: 20220816
  13. BECLOMETHASONE DIPROPIONATE [Concomitant]
     Active Substance: BECLOMETHASONE DIPROPIONATE
     Dosage: 1 MILLIGRAM
     Route: 040
     Dates: start: 20220714, end: 20220714
  14. SULFAMETHOXAZOLE\TRIMETHOPRIM [Concomitant]
     Active Substance: SULFAMETHOXAZOLE\TRIMETHOPRIM
     Dosage: 20 MILLIGRAM
     Route: 048
     Dates: start: 20220714, end: 20220723
  15. FLUOCINOLONE ACETONIDE;LIDOCAINE;NEOMYCIN [Concomitant]
     Dosage: 0.5 MILLIGRAM
     Route: 048
     Dates: start: 20220716, end: 20220718
  16. DEXTROSE [Concomitant]
     Active Substance: DEXTROSE
     Dosage: 1000 MILLILITER- 5 -200 MILLIGRAMS
     Route: 042
     Dates: start: 20220804, end: 20220828
  17. FLUCONAZOLE [Concomitant]
     Active Substance: FLUCONAZOLE
     Dosage: 50 MILLILITER
     Route: 042
     Dates: start: 20220708, end: 20220713
  18. TRANEXAMIC ACID [Concomitant]
     Active Substance: TRANEXAMIC ACID
  19. PEG 3350 [Concomitant]
     Active Substance: POLYETHYLENE GLYCOL 3350
     Dosage: UNK
     Route: 042
     Dates: start: 20220804, end: 20220813
  20. METHYLPREDNISOLONE [Concomitant]
     Active Substance: METHYLPREDNISOLONE
     Dosage: 100 MILLIGRAM, AND 1000 UNK
     Route: 042
     Dates: start: 20220803, end: 20220824
  21. TRANEXAMIC ACID [Concomitant]
     Active Substance: TRANEXAMIC ACID
     Dosage: UNK
     Route: 048
     Dates: start: 20220621, end: 20220902
  22. AMLODIPINE\PERINDOPRIL [Concomitant]
     Active Substance: AMLODIPINE\PERINDOPRIL
     Dosage: UNK
     Dates: start: 20220626
  23. ENALAPRIL [Concomitant]
     Active Substance: ENALAPRIL
     Dosage: 20-270 MILLIGRAM, 1000 UNK
     Route: 042
     Dates: start: 20220804, end: 20220901
  24. MERCAPTOPURINE [Concomitant]
     Active Substance: MERCAPTOPURINE
     Dosage: UNK
     Dates: start: 20220804, end: 20220818
  25. DIETARY SUPPLEMENT\HERBALS\MILK THISTLE [Concomitant]
     Active Substance: DIETARY SUPPLEMENT\HERBALS\MILK THISTLE
     Dosage: 2 MILLIGRAM
     Route: 042
     Dates: start: 20220805, end: 20220811

REACTIONS (1)
  - Thrombocytopenia [Recovered/Resolved]

NARRATIVE: CASE EVENT DATE: 20220806
